FAERS Safety Report 4725486-4 (Version None)
Quarter: 2005Q3

REPORT INFORMATION
  Report Type: 
  Country: None (occurrence: None)
  Receive Date: 20050725
  Receipt Date: 20050707
  Transmission Date: 20060218
  Serious: Yes (Other)
  Sender: FDA-Public Use
  Company Number: 2005-DE-02626GD

PATIENT
  Sex: Female

DRUGS (2)
  1. CYCLOPHOSPHAMIDE [Suspect]
     Indication: OVARIAN CANCER
  2. PLATINUM [Suspect]
     Indication: OVARIAN CANCER

REACTIONS (3)
  - CARBOHYDRATE ANTIGEN 125 INCREASED [None]
  - DRUG RESISTANCE [None]
  - MALIGNANT NEOPLASM PROGRESSION [None]
